FAERS Safety Report 8494676-X (Version None)
Quarter: 2012Q3

REPORT INFORMATION
  Report Type: 
  Country: None (occurrence: None)
  Receive Date: 20120709
  Receipt Date: 20120704
  Transmission Date: 20120928
  Serious: Yes (Hospitalization, Other)
  Sender: FDA-Public Use
  Company Number: PHHY2012HR003598

PATIENT
  Age: 78 Year
  Sex: Female
  Weight: 74 kg

DRUGS (5)
  1. BETASERC [Concomitant]
     Indication: DEAFNESS
     Dates: start: 20110715
  2. MODURETIC 5-50 [Suspect]
     Indication: ENDOLYMPHATIC HYDROPS
     Dosage: 1 DF, QD
     Route: 048
     Dates: start: 20110715, end: 20111201
  3. HYDROCHLOROTHIAZIDE W/CILAZAPRIL [Concomitant]
     Dates: start: 20040101
  4. REPAGLINIDE [Concomitant]
     Indication: DIABETES MELLITUS
     Dosage: 1 DF, QD
     Dates: start: 20050101
  5. BISOPROLOL FUMARATE [Concomitant]
     Dosage: 1 DF, QD
     Dates: start: 20040101

REACTIONS (18)
  - LOSS OF CONSCIOUSNESS [None]
  - SKIN ODOUR ABNORMAL [None]
  - HYPERHIDROSIS [None]
  - SYNCOPE [None]
  - FATIGUE [None]
  - SOMNOLENCE [None]
  - SPEECH DISORDER [None]
  - PRURITUS [None]
  - DIARRHOEA [None]
  - TRANSIENT ISCHAEMIC ATTACK [None]
  - APATHY [None]
  - HEPATIC CYST [None]
  - HICCUPS [None]
  - CONFUSIONAL STATE [None]
  - HYPERTENSION [None]
  - NOCTURIA [None]
  - ERYTHEMA [None]
  - PARAESTHESIA [None]
